FAERS Safety Report 24444488 (Version 1)
Quarter: 2024Q4

REPORT INFORMATION
  Report Type: Spontaneous
  Country: AU (occurrence: AU)
  Receive Date: 20241016
  Receipt Date: 20241016
  Transmission Date: 20250114
  Serious: Yes (Other)
  Sender: RANBAXY
  Company Number: AU-SUN PHARMACEUTICAL INDUSTRIES LTD-2024R1-469966

PATIENT
  Sex: Male

DRUGS (2)
  1. CLOPIDOGREL [Suspect]
     Active Substance: CLOPIDOGREL BISULFATE
     Indication: Antiplatelet therapy
     Dosage: 75 MILLIGRAM, DAILY
     Route: 065
  2. PRASUGREL [Suspect]
     Active Substance: PRASUGREL
     Indication: Antiplatelet therapy
     Dosage: UNK
     Route: 065

REACTIONS (2)
  - Vascular stent thrombosis [Unknown]
  - Drug resistance [Unknown]
